FAERS Safety Report 8381091-2 (Version None)
Quarter: 2012Q2

REPORT INFORMATION
  Report Type: 
  Country: None (occurrence: None)
  Receive Date: 20120523
  Receipt Date: 20120516
  Transmission Date: 20120825
  Serious: Yes (Other)
  Sender: FDA-Public Use
  Company Number: US-TEVA-338335USA

PATIENT
  Sex: Female
  Weight: 48.98 kg

DRUGS (1)
  1. CETIRIZINE HCL AND PSEUDOEPHEDRINE [Suspect]
     Indication: SEASONAL ALLERGY
     Dosage: 10 MILLIGRAM; UP TO 5 DAYS WEEKLY
     Route: 048
     Dates: start: 20120418

REACTIONS (4)
  - FATIGUE [None]
  - LOSS OF CONSCIOUSNESS [None]
  - SOMNOLENCE [None]
  - SLUGGISHNESS [None]
